FAERS Safety Report 8825817 (Version 2)
Quarter: 2012Q4

REPORT INFORMATION
  Report Type: 
  Country: US (occurrence: US)
  Receive Date: 20121004
  Receipt Date: 20121107
  Transmission Date: 20130627
  Serious: No
  Sender: FDA-Public Use
  Company Number: US-ASTRAZENECA-2012SE75766

PATIENT
  Age: 41 Year
  Sex: Female
  Weight: 124.7 kg

DRUGS (6)
  1. SEROQUEL [Suspect]
     Indication: BIPOLAR DISORDER
     Route: 048
     Dates: start: 2011
  2. SEROQUEL [Suspect]
     Indication: BIPOLAR DISORDER
     Route: 048
     Dates: start: 2012
  3. CELEXA [Concomitant]
     Indication: DEPRESSION
  4. LAMOTRIGINE [Concomitant]
     Indication: DEPRESSION
  5. AMBIEN [Concomitant]
     Indication: SLEEP DISORDER
  6. XANAX [Concomitant]
     Indication: ANXIETY

REACTIONS (6)
  - Crying [Unknown]
  - Decreased interest [Unknown]
  - Abnormal weight gain [Unknown]
  - Feeling abnormal [Unknown]
  - Drug dose omission [Unknown]
  - Off label use [Unknown]
